FAERS Safety Report 5704431-9 (Version None)
Quarter: 2008Q2

REPORT INFORMATION
  Report Type: 
  Country: None (occurrence: None)
  Receive Date: 20080414
  Receipt Date: 20080404
  Transmission Date: 20081010
  Serious: Yes (Hospitalization)
  Sender: FDA-Public Use
  Company Number: B0515836A

PATIENT
  Age: 80 Year
  Sex: Female

DRUGS (8)
  1. ZINNAT [Suspect]
     Indication: INFLUENZA LIKE ILLNESS
     Dosage: 250MG TWICE PER DAY
     Route: 048
     Dates: start: 20071122, end: 20071130
  2. VAXIGRIP [Suspect]
     Route: 058
     Dates: start: 20071118, end: 20071118
  3. PRORHINEL [Suspect]
     Route: 065
     Dates: start: 20071122, end: 20071130
  4. PREDNISONE [Suspect]
     Indication: DRUG USE FOR UNKNOWN INDICATION
     Route: 048
     Dates: start: 20071122, end: 20071130
  5. IRBESARTAN [Concomitant]
     Indication: DRUG USE FOR UNKNOWN INDICATION
     Dosage: 300MG PER DAY
     Route: 048
  6. LERCAN [Concomitant]
     Indication: DRUG USE FOR UNKNOWN INDICATION
     Dosage: 10MG PER DAY
     Route: 048
  7. DIHYDROERGOTAMINE MESYLATE [Concomitant]
     Indication: DRUG USE FOR UNKNOWN INDICATION
     Dosage: 5MG TWICE PER DAY
     Route: 048
  8. STRUCTUM [Concomitant]
     Indication: DRUG USE FOR UNKNOWN INDICATION
     Route: 048

REACTIONS (4)
  - ANAEMIA HAEMOLYTIC AUTOIMMUNE [None]
  - ASTHENIA [None]
  - DYSPNOEA [None]
  - JAUNDICE [None]
